FAERS Safety Report 7146492-9 (Version None)
Quarter: 2010Q4

REPORT INFORMATION
  Report Type: 
  Country: None (occurrence: None)
  Receive Date: 20101208
  Receipt Date: 20101123
  Transmission Date: 20110411
  Serious: No
  Sender: FDA-Public Use
  Company Number: US-B.I. PHARMACEUTICALS,INC./RIDGEFIELD-2010-BP-13355BP

PATIENT
  Sex: Female

DRUGS (5)
  1. PRADAXA [Suspect]
     Indication: PULMONARY EMBOLISM
     Dosage: 300 MG
     Route: 048
     Dates: start: 20101116
  2. PRADAXA [Suspect]
     Indication: CEREBROVASCULAR ACCIDENT
  3. DICYCLOMINE [Concomitant]
     Indication: ABDOMINAL PAIN
  4. VIT B [Concomitant]
     Indication: VITAMIN B COMPLEX DEFICIENCY
  5. 3 HEART MEDICATIONS [Concomitant]

REACTIONS (1)
  - MUSCULOSKELETAL CHEST PAIN [None]
